FAERS Safety Report 8203920-5 (Version None)
Quarter: 2012Q1

REPORT INFORMATION
  Report Type: 
  Country: None (occurrence: None)
  Receive Date: 20120313
  Receipt Date: 20120305
  Transmission Date: 20120608
  Serious: Yes (Hospitalization)
  Sender: FDA-Public Use
  Company Number: US-BAYER-2012-022473

PATIENT
  Age: 31 Year
  Sex: Female

DRUGS (3)
  1. PERCOCET [Concomitant]
     Indication: PAIN
     Dosage: UNK UNK, PRN
     Dates: start: 20070718
  2. TYLENOL PM [Concomitant]
     Indication: PAIN
     Dosage: UNK UNK, PRN
     Dates: start: 20070718
  3. YAZ [Suspect]
     Dosage: UNK
     Dates: start: 20070701

REACTIONS (1)
  - PULMONARY EMBOLISM [None]
